FAERS Safety Report 6971707-7 (Version None)
Quarter: 2010Q3

REPORT INFORMATION
  Report Type: 
  Country: None (occurrence: None)
  Receive Date: 20100908
  Receipt Date: 20100630
  Transmission Date: 20110219
  Serious: Yes (Other)
  Sender: FDA-Public Use
  Company Number: US-PFIZER INC-2010082637

PATIENT
  Sex: Female

DRUGS (2)
  1. NARDIL [Suspect]
     Dosage: UNK
  2. HYDROCHLOROTHIAZIDE [Concomitant]
     Indication: PAIN
     Dosage: UNK

REACTIONS (2)
  - FOOD CRAVING [None]
  - WEIGHT INCREASED [None]
